FAERS Safety Report 19914019 (Version 1)
Quarter: 2021Q4

REPORT INFORMATION
  Report Type: Spontaneous
  Country: CN (occurrence: CN)
  Receive Date: 20211004
  Receipt Date: 20211004
  Transmission Date: 20220303
  Serious: Yes (Other)
  Sender: FDA-Public Use
  Company Number: CN-BRACCO-2021CN04153

PATIENT
  Age: 39 Year
  Sex: Female

DRUGS (3)
  1. SULFUR HEXAFLUORIDE [Suspect]
     Active Substance: SULFUR HEXAFLUORIDE
     Indication: Ultrasound uterus
     Dosage: 59 MG, SINGLE
     Route: 042
     Dates: start: 20210913, end: 20210913
  2. SULFUR HEXAFLUORIDE [Suspect]
     Active Substance: SULFUR HEXAFLUORIDE
     Indication: Ultrasound uterus
     Dosage: 59 MG, SINGLE
     Route: 042
     Dates: start: 20210913, end: 20210913
  3. SULFUR HEXAFLUORIDE [Suspect]
     Active Substance: SULFUR HEXAFLUORIDE
     Indication: Ultrasound uterus
     Dosage: 59 MG, SINGLE
     Route: 042
     Dates: start: 20210913, end: 20210913

REACTIONS (6)
  - Off label use [Recovered/Resolved]
  - Seizure [Recovered/Resolved]
  - Quadriplegia [Recovered/Resolved]
  - Abdominal pain lower [Recovered/Resolved]
  - Dizziness [Recovered/Resolved]
  - Asthenia [Recovered/Resolved]

NARRATIVE: CASE EVENT DATE: 20210913
